FAERS Safety Report 19367659 (Version 1)
Quarter: 2021Q2

REPORT INFORMATION
  Report Type: Report from Study
  Country: US (occurrence: US)
  Receive Date: 20210603
  Receipt Date: 20210603
  Transmission Date: 20210717
  Serious: Yes (Other)
  Sender: FDA-Public Use
  Company Number: US-PFIZER INC-2019412724

PATIENT
  Age: 72 Year
  Sex: Female

DRUGS (4)
  1. IBRANCE [Suspect]
     Active Substance: PALBOCICLIB
     Dosage: 100 MG, CYCLIC (DAILY, 100MG FOR 21 DAYS, THEN 7 DAYS OFF)
     Route: 048
     Dates: start: 20210305
  2. IBRANCE [Suspect]
     Active Substance: PALBOCICLIB
     Dosage: 100 MG, CYCLIC (100MG DAILY FOR 21 DAYS, THEN 7 DAYS OFF)
     Route: 048
     Dates: start: 202103
  3. IBRANCE [Suspect]
     Active Substance: PALBOCICLIB
     Indication: BREAST CANCER FEMALE
     Dosage: 125 MG, CYCLIC (DAILY, FOR 21 DAYS, THEN 7 DAYS OFF)
     Route: 048
     Dates: start: 20190914, end: 2019
  4. IBRANCE [Suspect]
     Active Substance: PALBOCICLIB
     Dosage: 125 MG, CYCLIC (DAILY, FOR 21 DAYS, THEN 7 DAYS OFF)
     Route: 048
     Dates: start: 2019, end: 2020

REACTIONS (17)
  - Abdominal pain upper [Not Recovered/Not Resolved]
  - Hypogeusia [Recovered/Resolved]
  - Blood glucose fluctuation [Unknown]
  - Feeling abnormal [Unknown]
  - Deep vein thrombosis [Unknown]
  - Gastrooesophageal reflux disease [Unknown]
  - Anosmia [Recovered/Resolved]
  - Decreased appetite [Unknown]
  - Leukopenia [Unknown]
  - Stomatitis [Unknown]
  - Fatigue [Unknown]
  - Lung disorder [Recovered/Resolved]
  - Abdominal discomfort [Unknown]
  - Dizziness [Unknown]
  - Blood count abnormal [Not Recovered/Not Resolved]
  - Oropharyngeal pain [Unknown]
  - COVID-19 [Recovered/Resolved]

NARRATIVE: CASE EVENT DATE: 2019
